FAERS Safety Report 5603704-8 (Version None)
Quarter: 2008Q1

REPORT INFORMATION
  Report Type: 
  Country: None (occurrence: None)
  Receive Date: 20080128
  Receipt Date: 20070919
  Transmission Date: 20080703
  Serious: No
  Sender: FDA-Public Use
  Company Number: US-BAYER-US-2007-035525

PATIENT
  Age: 49 Year
  Sex: Female

DRUGS (1)
  1. ANGELIQ [Suspect]
     Indication: VULVOVAGINAL DRYNESS
     Route: 048
     Dates: start: 20070701

REACTIONS (1)
  - METRORRHAGIA [None]
